FAERS Safety Report 16216009 (Version 1)
Quarter: 2019Q2

REPORT INFORMATION
  Report Type: Report from Study
  Country: None (occurrence: US)
  Receive Date: 20190419
  Receipt Date: 20190419
  Transmission Date: 20190711
  Serious: Yes (Hospitalization, Other)
  Sender: FDA-Public Use
  Company Number: US-ABBVIE-19K-163-2744527-00

PATIENT
  Age: 72 Year
  Sex: Female

DRUGS (1)
  1. HUMIRA [Suspect]
     Active Substance: ADALIMUMAB
     Indication: RHEUMATOID ARTHRITIS
     Route: 058
     Dates: start: 20180612

REACTIONS (3)
  - Cholecystectomy [Recovered/Resolved]
  - Neck surgery [Recovered/Resolved]
  - Respiratory tract procedural complication [Recovering/Resolving]

NARRATIVE: CASE EVENT DATE: 20190312
